FAERS Safety Report 13742735 (Version 1)
Quarter: 2017Q3

REPORT INFORMATION
  Report Type: Report from Study
  Country: BE (occurrence: BE)
  Receive Date: 20170711
  Receipt Date: 20170711
  Transmission Date: 20171127
  Serious: Yes (Other)
  Sender: FDA-Public Use
  Company Number: BE-MYLANLABS-2017M1041118

PATIENT

DRUGS (6)
  1. THALIDOMIDE [Suspect]
     Active Substance: THALIDOMIDE
     Indication: PLASMA CELL MYELOMA
     Dosage: 50 MG/DAY
     Route: 065
  2. BORTEZOMIB [Suspect]
     Active Substance: BORTEZOMIB
     Indication: PLASMA CELL MYELOMA
     Dosage: TWICE-WEEKLY IN A 21-DAY CYCLE
     Route: 065
  3. ENOXAPARIN SODIUM. [Concomitant]
     Active Substance: ENOXAPARIN SODIUM
     Dosage: 40 MG DAILY
     Route: 058
  4. ACICLOVIR [Concomitant]
     Active Substance: ACYCLOVIR
     Route: 058
  5. DEXAMETHASONE. [Suspect]
     Active Substance: DEXAMETHASONE
     Indication: PLASMA CELL MYELOMA
     Dosage: 40 MG ON THE DAY OF AND THE DAY FOLLOWING BORTEZOMIB
     Route: 048
  6. THALIDOMIDE [Suspect]
     Active Substance: THALIDOMIDE
     Dosage: 100 MG/DAY
     Route: 065

REACTIONS (6)
  - Tremor [Recovered/Resolved]
  - Neuropathy peripheral [Unknown]
  - Autonomic neuropathy [Unknown]
  - Hyperglycaemia [Recovered/Resolved]
  - Blepharitis [Recovered/Resolved]
  - Paraesthesia [Unknown]
